FAERS Safety Report 18499195 (Version 2)
Quarter: 2020Q4

REPORT INFORMATION
  Report Type: Report from Study
  Country: CN (occurrence: CN)
  Receive Date: 20201113
  Receipt Date: 20201215
  Transmission Date: 20210114
  Serious: Yes (Hospitalization)
  Sender: FDA-Public Use
  Company Number: CN-AMGEN-CHNCT2020180535

PATIENT
  Age: 23 Year
  Sex: Female

DRUGS (6)
  1. OMEPRAZOLE. [Concomitant]
     Active Substance: OMEPRAZOLE
     Indication: NAUSEA
     Dosage: UNK
     Route: 065
     Dates: start: 20201006, end: 20201012
  2. COMPOUND GLYCYRRHIZIN [CYSTEINE HYDROCHLORIDE;GLYCINE;GLYCYRRHIZIC ACI [Concomitant]
     Indication: ALANINE AMINOTRANSFERASE INCREASED
     Dosage: UNK
     Route: 065
     Dates: start: 20200927, end: 20201011
  3. PLACEBO [Suspect]
     Active Substance: UNSPECIFIED INGREDIENT
     Indication: MIGRAINE
     Dosage: UNK
     Route: 058
     Dates: start: 20200702, end: 20200923
  4. ERENUMAB [Suspect]
     Active Substance: ERENUMAB
     Indication: MIGRAINE
     Dosage: 1 ML, QMO
     Route: 058
     Dates: start: 20200923, end: 20200923
  5. OMEPRAZOLE. [Concomitant]
     Active Substance: OMEPRAZOLE
     Indication: VOMITING
     Dosage: UNK
  6. COMPOUND GLYCYRRHIZIN [CYSTEINE HYDROCHLORIDE;GLYCINE;GLYCYRRHIZIC ACI [Concomitant]
     Indication: ASPARTATE AMINOTRANSFERASE INCREASED
     Dosage: UNK

REACTIONS (1)
  - Acute hepatitis B [Recovered/Resolved]

NARRATIVE: CASE EVENT DATE: 20201019
